FAERS Safety Report 10494110 (Version 1)
Quarter: 2014Q4

REPORT INFORMATION
  Report Type: Spontaneous
  Country: US (occurrence: None)
  Receive Date: 20141002
  Receipt Date: 20141002
  Transmission Date: 20150528
  Serious: Yes (Life-Threatening)
  Sender: FDA-Public Use
  Company Number: None

PATIENT
  Age: 62 Year
  Sex: Female
  Weight: 71.67 kg

DRUGS (2)
  1. GAMMAGARD [Suspect]
     Active Substance: HUMAN IMMUNOGLOBULIN G
     Indication: SURGERY
     Dates: start: 20140320, end: 20140324
  2. GAMMAGARD [Suspect]
     Active Substance: HUMAN IMMUNOGLOBULIN G
     Indication: SJOGREN^S SYNDROME
     Dates: start: 20140320, end: 20140324

REACTIONS (8)
  - Coronary artery occlusion [None]
  - Nausea [None]
  - Chest pain [None]
  - Helicobacter infection [None]
  - Collateral circulation [None]
  - Incorrect drug administration rate [None]
  - Pain in extremity [None]
  - Cardiac disorder [None]

NARRATIVE: CASE EVENT DATE: 20140404
